FAERS Safety Report 19701205 (Version 1)
Quarter: 2021Q3

REPORT INFORMATION
  Report Type: Spontaneous
  Country: GB (occurrence: GB)
  Receive Date: 20210813
  Receipt Date: 20210813
  Transmission Date: 20211014
  Serious: Yes (Other)
  Sender: FDA-Public Use
  Company Number: NVSC2021GB178323

PATIENT
  Sex: Male

DRUGS (1)
  1. COSENTYX [Suspect]
     Active Substance: SECUKINUMAB
     Indication: PSORIATIC ARTHROPATHY
     Dosage: 150 MG, QMO
     Route: 058
     Dates: start: 20181030

REACTIONS (6)
  - Product dose omission issue [Unknown]
  - Autoimmune disorder [Unknown]
  - Tendonitis [Unknown]
  - Peripheral swelling [Unknown]
  - Dry skin [Unknown]
  - Pain [Unknown]
